FAERS Safety Report 8064565-3 (Version None)
Quarter: 2012Q1

REPORT INFORMATION
  Report Type: 
  Country: None (occurrence: None)
  Receive Date: 20120123
  Receipt Date: 20120117
  Transmission Date: 20120608
  Serious: Yes (Hospitalization, Other)
  Sender: FDA-Public Use
  Company Number: US-ASTRAZENECA-2011SE44573

PATIENT
  Age: 38 Year
  Sex: Female
  Weight: 59.9 kg

DRUGS (16)
  1. SEROQUEL [Suspect]
     Indication: INSOMNIA
     Route: 048
  2. SEROQUEL [Suspect]
     Route: 048
  3. ONDANSETRON HCL [Concomitant]
     Indication: NAUSEA
     Dosage: 8 MG, EVERY 8 HOURS AS NEEDED
     Route: 048
     Dates: start: 20110629
  4. VICODIN ES [Concomitant]
     Indication: PAIN
     Dosage: 7.5 MG-750 MG, 1 TABLET , FOUR TIMES A DAY, AS NEEDED
     Dates: start: 20110629
  5. REMERON [Concomitant]
     Dosage: 30 MG, EVERY DAY, BEFORE BEDTIME
     Route: 048
     Dates: start: 20110629
  6. KLONOPIN [Concomitant]
     Dates: start: 20110629
  7. PROPRANOLOL [Concomitant]
     Route: 048
     Dates: start: 20110629
  8. SEROQUEL [Suspect]
     Route: 048
     Dates: start: 20110706
  9. SEROQUEL [Suspect]
     Route: 048
  10. MARIJUANA [Suspect]
     Route: 065
  11. SEROQUEL [Suspect]
     Route: 048
     Dates: start: 20110706
  12. SEROQUEL [Suspect]
     Route: 048
  13. OMEPRAZOLE [Concomitant]
     Route: 048
  14. SEROQUEL [Suspect]
     Indication: MOOD SWINGS
     Route: 048
  15. SEROQUEL [Suspect]
     Route: 048
  16. COCAINE [Suspect]
     Route: 065

REACTIONS (17)
  - DEPRESSION [None]
  - ADJUSTMENT DISORDER [None]
  - OFF LABEL USE [None]
  - VERTIGO [None]
  - DRUG DOSE OMISSION [None]
  - SUICIDAL BEHAVIOUR [None]
  - POLYSUBSTANCE DEPENDENCE [None]
  - THERAPY CESSATION [None]
  - BORDERLINE PERSONALITY DISORDER [None]
  - PAIN [None]
  - DRUG SCREEN POSITIVE [None]
  - INSOMNIA [None]
  - HALLUCINATION [None]
  - RESTLESS LEGS SYNDROME [None]
  - CONVULSION [None]
  - ANXIETY [None]
  - DRUG INEFFECTIVE FOR UNAPPROVED INDICATION [None]
